FAERS Safety Report 6719795-7 (Version None)
Quarter: 2010Q2

REPORT INFORMATION
  Report Type: 
  Country: None (occurrence: None)
  Receive Date: 20100511
  Receipt Date: 20100430
  Transmission Date: 20101027
  Serious: Yes (Other)
  Sender: FDA-Public Use
  Company Number: D0066624A

PATIENT
  Sex: Female

DRUGS (24)
  1. VIANI FORTE [Suspect]
     Indication: ASTHMA
     Route: 065
     Dates: start: 20081013
  2. FLUTIDE FORTE [Suspect]
     Route: 055
  3. PREDNISOLON [Suspect]
     Dosage: 2.5MG TWICE PER DAY
     Route: 065
  4. DECORTIN [Suspect]
     Dosage: 7.5MG PER DAY
     Route: 065
  5. PREDNISOLONE SODIUM SUCCINATE INJ [Suspect]
     Dosage: 250MG SINGLE DOSE
     Route: 065
  6. SINGULAIR [Concomitant]
     Dosage: 10MG PER DAY
     Route: 065
  7. SPIRIVA [Concomitant]
     Route: 065
  8. TELFAST [Concomitant]
     Dosage: 180MG PER DAY
     Route: 065
  9. BERODUAL [Concomitant]
     Route: 065
  10. LEVOTHYROXINE SODIUM [Concomitant]
     Route: 065
  11. VALETTE [Concomitant]
     Route: 065
  12. KETOF [Concomitant]
     Dosage: 2MG PER DAY
     Route: 065
  13. PANTOZOL [Concomitant]
     Route: 065
  14. MOTILIUM [Concomitant]
     Route: 065
  15. SULTANOL [Concomitant]
     Route: 055
  16. BEROTEC [Concomitant]
     Route: 065
  17. CLARITHROMYCIN [Concomitant]
     Route: 065
  18. FENISTIL [Concomitant]
     Route: 065
  19. CELESTAMINE TAB [Concomitant]
     Route: 065
     Dates: start: 20081015
  20. BRONCHOSPASMIN [Concomitant]
     Route: 065
     Dates: start: 20081015
  21. MCP [Concomitant]
     Route: 065
     Dates: start: 20081015
  22. VOMEX [Concomitant]
     Route: 065
     Dates: start: 20081015
  23. AMPHOTERICIN B [Concomitant]
     Indication: ORAL CANDIDIASIS
     Route: 065
     Dates: start: 20090715
  24. CLEMASTINE FUMARATE [Concomitant]
     Route: 065

REACTIONS (4)
  - ADRENAL INSUFFICIENCY [None]
  - DIABETES MELLITUS [None]
  - DYSPHONIA [None]
  - HYPERTENSION [None]
